FAERS Safety Report 9570865 (Version 3)
Quarter: 2013Q4

REPORT INFORMATION
  Report Type: Spontaneous
  Country: JP (occurrence: JP)
  Receive Date: 20131001
  Receipt Date: 20131104
  Transmission Date: 20140711
  Serious: Yes (Hospitalization, Other)
  Sender: FDA-Public Use
  Company Number: JP-ELI_LILLY_AND_COMPANY-JP201309007118

PATIENT
  Age: 76 Year
  Sex: Female
  Weight: 53 kg

DRUGS (2)
  1. GEMZAR [Suspect]
     Indication: GALLBLADDER CANCER STAGE IV
     Dosage: UNK UNK, OTHER
     Route: 042
     Dates: start: 20120208, end: 20121219
  2. CISPLATIN [Concomitant]
     Indication: GALLBLADDER CANCER STAGE IV
     Dosage: UNK, OTHER
     Route: 042
     Dates: start: 20120208, end: 20120711

REACTIONS (2)
  - Thrombotic microangiopathy [Unknown]
  - Nephrotic syndrome [Recovered/Resolved]
